FAERS Safety Report 16920164 (Version 1)
Quarter: 2019Q4

REPORT INFORMATION
  Report Type: Spontaneous
  Country: US (occurrence: US)
  Receive Date: 20191015
  Receipt Date: 20191015
  Transmission Date: 20200122
  Serious: Yes (Other)
  Sender: FDA-Public Use
  Company Number: US-LUNDBECK-DKLU3005900

PATIENT
  Age: 23 Year
  Sex: Female

DRUGS (1)
  1. NORTHERA [Suspect]
     Active Substance: DROXIDOPA
     Indication: AUTONOMIC NEUROPATHY
     Route: 048
     Dates: start: 20190501

REACTIONS (3)
  - Hypoxia [Unknown]
  - Dysarthria [Unknown]
  - Seizure [Unknown]

NARRATIVE: CASE EVENT DATE: 20190925
